FAERS Safety Report 9110350 (Version 1)
Quarter: 2013Q1

REPORT INFORMATION
  Report Type: Spontaneous
  Country: GB (occurrence: GB)
  Receive Date: 20130222
  Receipt Date: 20130222
  Transmission Date: 20140127
  Serious: Yes (Disabling)
  Sender: FDA-Public Use
  Company Number: GB-GLAXOSMITHKLINE-B0868505A

PATIENT
  Age: 45 Year
  Sex: Female

DRUGS (7)
  1. NIQUITIN [Suspect]
     Indication: SMOKING CESSATION THERAPY
     Route: 060
     Dates: start: 20121031, end: 20121031
  2. CETIRIZINE [Concomitant]
     Indication: RHINITIS ALLERGIC
     Dosage: 10MG PER DAY
     Route: 048
  3. CITALOPRAM [Concomitant]
     Indication: ANXIETY
     Dosage: 40MG PER DAY
     Route: 048
     Dates: start: 2010
  4. CODEINE PHOSPHATE [Concomitant]
     Indication: COLITIS ULCERATIVE
     Route: 048
  5. ERYTHROMYCIN [Concomitant]
     Route: 048
  6. PROPRANOLOL [Concomitant]
     Indication: MIGRAINE
     Dosage: 40MG PER DAY
     Route: 048
  7. ASACOL [Concomitant]
     Indication: COLITIS ULCERATIVE
     Dosage: 200MG PER DAY
     Route: 048

REACTIONS (5)
  - Dizziness [Recovered/Resolved]
  - Nausea [Recovered/Resolved]
  - Diarrhoea [Recovered/Resolved]
  - Vomiting [Recovered/Resolved]
  - Hypersensitivity [Recovered/Resolved]
